FAERS Safety Report 24051260 (Version 4)
Quarter: 2024Q3

REPORT INFORMATION
  Report Type: Spontaneous
  Country: JP (occurrence: JP)
  Receive Date: 20240704
  Receipt Date: 20240925
  Transmission Date: 20241017
  Serious: Yes (Hospitalization, Other)
  Sender: PFIZER
  Company Number: JP-TAKEDA-2024TJP009372

PATIENT
  Age: 43 Year
  Sex: Female
  Weight: 110 kg

DRUGS (9)
  1. ADCETRIS [Suspect]
     Active Substance: BRENTUXIMAB VEDOTIN
     Indication: Hodgkin^s disease recurrent
     Dosage: 180 MILLIGRAM, QD
     Route: 041
     Dates: start: 20240604, end: 20240604
  2. BISOPROLOL FUMARATE [Concomitant]
     Active Substance: BISOPROLOL FUMARATE
     Indication: Cardiac dysfunction
     Dosage: 2.5 MILLIGRAM, QD
     Route: 048
     Dates: start: 20221028
  3. FEBUXOSTAT [Concomitant]
     Active Substance: FEBUXOSTAT
     Indication: Hyperuricaemia
     Dosage: 20 MILLIGRAM, QD
     Route: 048
     Dates: start: 20220415
  4. BEZAFIBRATE [Concomitant]
     Active Substance: BEZAFIBRATE
     Indication: Hyperlipidaemia
     Dosage: 200 MILLIGRAM, BID, SLOW RELEASE TABLET
     Route: 048
     Dates: start: 20220722
  5. URSO [Concomitant]
     Active Substance: URSODIOL
     Indication: Hepatic steatosis
     Dosage: 200 MILLIGRAM, TID
     Route: 048
     Dates: start: 20201028
  6. FAMOTIDINE [Concomitant]
     Active Substance: FAMOTIDINE
     Indication: Gastritis prophylaxis
     Dosage: 20 MILLIGRAM, QD
     Route: 048
     Dates: start: 20240604
  7. SULFAMETHOXAZOLE\TRIMETHOPRIM [Concomitant]
     Active Substance: SULFAMETHOXAZOLE\TRIMETHOPRIM
     Indication: Prophylaxis
     Dosage: 0.5 DOSAGE FORM, QD
     Route: 048
     Dates: start: 20240604
  8. ENALAPRIL MALEATE [Concomitant]
     Active Substance: ENALAPRIL MALEATE
     Indication: Cardiac dysfunction
     Dosage: 1.25 MILLIGRAM, QD
     Route: 048
     Dates: start: 20240608
  9. DEXAMETHASONE SODIUM PHOSPHATE [Concomitant]
     Active Substance: DEXAMETHASONE PHOSPHATE\DEXAMETHASONE SODIUM PHOSPHATE
     Indication: Premedication
     Dosage: 6.6 MILLIGRAM, QD
     Route: 050
     Dates: start: 20240604, end: 20240604

REACTIONS (6)
  - Insulin resistance [Recovered/Resolved]
  - Cytokine release syndrome [Recovered/Resolved]
  - Febrile neutropenia [Recovered/Resolved]
  - Liver disorder [Recovering/Resolving]
  - Headache [Recovered/Resolved]
  - Amylase increased [Recovered/Resolved]

NARRATIVE: CASE EVENT DATE: 20240608
